FAERS Safety Report 7439714-8 (Version None)
Quarter: 2011Q2

REPORT INFORMATION
  Report Type: 
  Country: None (occurrence: None)
  Receive Date: 20110427
  Receipt Date: 20110415
  Transmission Date: 20111010
  Serious: Yes (Hospitalization)
  Sender: FDA-Public Use
  Company Number: PHHY2011US32570

PATIENT
  Sex: Female

DRUGS (27)
  1. DUONEB [Concomitant]
  2. DIPHENHYDRAMINE [Concomitant]
  3. ACIPHEX [Concomitant]
  4. IRON [Concomitant]
     Dosage: 325 MG, BID
  5. ALPHA LIPOIC ACID [Concomitant]
     Dosage: 100 MG, UNK
  6. CALCIUM [Concomitant]
     Dosage: 1000 MG, UNK
  7. VITAMIN E [Concomitant]
  8. THEOPHYLLINE [Concomitant]
  9. NAPROXEN SODIUM [Concomitant]
  10. PROTONIX [Suspect]
  11. MISOPROSTOL [Concomitant]
  12. BONIVA [Concomitant]
  13. SKELAXIN [Suspect]
  14. VIOXX [Suspect]
  15. ALBUTEROL [Concomitant]
  16. VITAMIN D [Concomitant]
  17. VITAMIN C [Concomitant]
  18. MAGNESIUM [Concomitant]
     Dosage: 400 MG, UNK
  19. SULFAMETHOXAZOLE [Suspect]
  20. FLEXERIL [Concomitant]
  21. BUTALBITAL ACETAMINOPHEN AND CAFFEINE [Concomitant]
  22. TOBI [Suspect]
     Dosage: 300 MG, BID
     Dates: start: 20010101
  23. QVAR 40 [Concomitant]
  24. XOPENEX [Concomitant]
  25. ASTELIN [Concomitant]
  26. PATANOL [Concomitant]
  27. ACIDOPHILUS ^ZYMA^ [Concomitant]

REACTIONS (10)
  - GASTRIC ULCER HAEMORRHAGE [None]
  - ANAEMIA [None]
  - URTICARIA [None]
  - INSOMNIA [None]
  - SPEECH DISORDER [None]
  - NAUSEA [None]
  - ABDOMINAL PAIN UPPER [None]
  - AMNESIA [None]
  - TINNITUS [None]
  - CEREBROVASCULAR ACCIDENT [None]
